FAERS Safety Report 19051292 (Version 1)
Quarter: 2021Q1

REPORT INFORMATION
  Report Type: Spontaneous
  Country: US (occurrence: US)
  Receive Date: 20210323
  Receipt Date: 20210323
  Transmission Date: 20210420
  Serious: Yes (Other)
  Sender: FDA-Public Use
  Company Number: None

PATIENT
  Age: 43 Year

DRUGS (2)
  1. CABOMETYX [Suspect]
     Active Substance: CABOZANTINIB S-MALATE
     Indication: DIFFUSE LARGE B-CELL LYMPHOMA
     Route: 048
     Dates: start: 20210224
  2. PROBIOTIC CAP [Concomitant]
     Dates: start: 20210322

REACTIONS (2)
  - Hair colour changes [None]
  - Dizziness [None]

NARRATIVE: CASE EVENT DATE: 20210322
